FAERS Safety Report 20360833 (Version 4)
Quarter: 2022Q3

REPORT INFORMATION
  Report Type: Report from Study
  Country: JP (occurrence: JP)
  Receive Date: 20220121
  Receipt Date: 20220725
  Transmission Date: 20221027
  Serious: Yes (Death)
  Sender: FDA-Public Use
  Company Number: JP-ABBVIE-21K-087-3954164-00

PATIENT
  Age: 73 Year
  Sex: Female
  Weight: 40 kg

DRUGS (3)
  1. CARBIDOPA\LEVODOPA [Suspect]
     Active Substance: CARBIDOPA\LEVODOPA
     Indication: Parkinson^s disease
     Dosage: MD: 5.5 ML, CD: 3.2 ML/HR-16 HRS, ED: 0 ML/UNIT
     Route: 050
     Dates: start: 20190418
  2. CARBIDOPA\LEVODOPA [Suspect]
     Active Substance: CARBIDOPA\LEVODOPA
  3. ROTIGOTINE [Concomitant]
     Active Substance: ROTIGOTINE
     Indication: Parkinson^s disease
     Route: 062

REACTIONS (2)
  - Myocardial infarction [Fatal]
  - Stoma site extravasation [Unknown]

NARRATIVE: CASE EVENT DATE: 20220118
